FAERS Safety Report 14413608 (Version 2)
Quarter: 2018Q2

REPORT INFORMATION
  Report Type: Spontaneous
  Country: SE (occurrence: SE)
  Receive Date: 20180119
  Receipt Date: 20180411
  Transmission Date: 20180711
  Serious: Yes (Life-Threatening)
  Sender: FDA-Public Use
  Company Number: SE-TEVA-2018-SE-847156

PATIENT
  Age: 78 Year
  Sex: Male

DRUGS (1)
  1. VENLAFAXINE [Suspect]
     Active Substance: VENLAFAXINE HYDROCHLORIDE
     Route: 065

REACTIONS (1)
  - Hypovolaemic shock [Unknown]

NARRATIVE: CASE EVENT DATE: 20171026
